FAERS Safety Report 21160549 (Version 1)
Quarter: 2022Q3

REPORT INFORMATION
  Report Type: Spontaneous
  Country: US (occurrence: None)
  Receive Date: 20220801
  Receipt Date: 20220801
  Transmission Date: 20221026
  Serious: No
  Sender: FDA-Public Use
  Company Number: None

PATIENT
  Sex: Female

DRUGS (2)
  1. ZILRETTA [Suspect]
     Active Substance: TRIAMCINOLONE ACETONIDE
     Indication: Arthralgia
     Dates: start: 20220706, end: 20220706
  2. Linostat [Concomitant]

REACTIONS (4)
  - Pain [None]
  - Paradoxical drug reaction [None]
  - Product prescribing issue [None]
  - Product communication issue [None]

NARRATIVE: CASE EVENT DATE: 20220706
